FAERS Safety Report 4815205-5 (Version None)
Quarter: 2005Q4

REPORT INFORMATION
  Report Type: 
  Country: None (occurrence: None)
  Receive Date: 20051027
  Receipt Date: 20051018
  Transmission Date: 20060501
  Serious: Yes (Hospitalization)
  Sender: FDA-Public Use
  Company Number: 2005-04051

PATIENT
  Age: 36 Year
  Sex: Female

DRUGS (7)
  1. TRAMADOL HYDROCHLORIDE [Suspect]
     Indication: BACK PAIN
     Dosage: 750MG, SINGLE (15 TABLETS), ORAL
  2. TRAMADOL HYDROCHLORIDE [Suspect]
     Indication: NECK PAIN
     Dosage: 750MG, SINGLE (15 TABLETS), ORAL
  3. MIRTAZAPINE [Suspect]
     Indication: DEPRESSION
     Dosage: 30 MG, DAILY, ORAL
     Route: 048
  4. GABAPENTIN [Concomitant]
  5. ZOLPIDEM TARTRATE [Concomitant]
  6. LEVOTHYROXINE SODIUM [Concomitant]
  7. PMS-CONJUGATED ESTROGENS (ESTROGENS CONJUGATED) [Concomitant]

REACTIONS (7)
  - CONVULSION [None]
  - DRUG INTERACTION [None]
  - LOSS OF CONSCIOUSNESS [None]
  - OVERDOSE [None]
  - PYREXIA [None]
  - SEROTONIN SYNDROME [None]
  - TACHYCARDIA [None]
